FAERS Safety Report 8337742 (Version 6)
Quarter: 2021Q3

REPORT INFORMATION
  Report Type: Report from Study
  Country: PL (occurrence: PL)
  Receive Date: 20120116
  Receipt Date: 20210927
  Transmission Date: 20211014
  Serious: Yes (Other)
  Sender: FDA-Public Use
  Company Number: PL-SHIRE-SPV1-2012-00030

PATIENT
  Age: 14 Year
  Sex: Male
  Weight: 26.76 kg

DRUGS (4)
  1. ELAPRASE [Suspect]
     Active Substance: IDURSULFASE
     Indication: MUCOPOLYSACCHARIDOSIS II
     Dosage: 0.5 MILLIGRAM/KILOGRAM, 1/WEEK
     Route: 041
     Dates: start: 20090911
  2. ELAPRASE [Suspect]
     Active Substance: IDURSULFASE
     Dosage: UNK
     Route: 041
     Dates: start: 20100923
  3. METAMIZOLE SODIUM [Concomitant]
     Active Substance: METAMIZOLE SODIUM
     Dosage: UNK
     Route: 065
  4. GENISTEIN [Concomitant]
     Active Substance: GENISTEIN
     Indication: CARDIOVASCULAR DISORDER
     Dosage: UNK, UNKNOWN
     Route: 065
     Dates: start: 20080312

REACTIONS (8)
  - Underweight [Unknown]
  - Tonic posturing [Recovered/Resolved]
  - Mitral valve incompetence [Unknown]
  - Bradycardia [Unknown]
  - Peripheral vascular disorder [Unknown]
  - Infusion related reaction [Recovered/Resolved]
  - Scoliosis [Unknown]
  - Upper respiratory tract infection [Unknown]

NARRATIVE: CASE EVENT DATE: 20090911
